FAERS Safety Report 7645664-4 (Version None)
Quarter: 2011Q3

REPORT INFORMATION
  Report Type: 
  Country: None (occurrence: None)
  Receive Date: 20110729
  Receipt Date: 20110727
  Transmission Date: 20111222
  Serious: No
  Sender: FDA-Public Use
  Company Number: US-PFIZER INC-2011171205

PATIENT
  Sex: Male
  Weight: 54.422 kg

DRUGS (13)
  1. PROMETHAZINE HYDROCHLORIDE [Concomitant]
     Dosage: UNK
  2. INSULIN [Concomitant]
     Indication: TYPE 1 DIABETES MELLITUS
     Dosage: UNK
  3. NEURONTIN [Concomitant]
     Indication: NERVE INJURY
     Dosage: UNK
  4. NEURONTIN [Concomitant]
     Indication: NEURALGIA
  5. ATIVAN [Concomitant]
     Indication: ANXIETY
     Dosage: 0.5 MG, UNK
  6. ABILIFY [Concomitant]
     Indication: DEPRESSION
     Dosage: UNK
     Dates: start: 20110701
  7. CHANTIX [Suspect]
     Indication: SMOKING CESSATION THERAPY
     Dosage: 0.5 MG, DAILY
     Route: 048
     Dates: start: 20110712
  8. CHANTIX [Suspect]
     Dosage: 1 MG, 2X/DAY
     Route: 048
  9. PROTONIX [Concomitant]
     Indication: GASTROOESOPHAGEAL REFLUX DISEASE
     Dosage: UNK
  10. LOMOTIL [Concomitant]
     Indication: DIARRHOEA
     Dosage: UNK, AS NEEDED
  11. CYMBALTA [Suspect]
     Indication: DEPRESSION
     Dosage: 60 MG, DAILY
  12. OXYCODONE [Concomitant]
     Dosage: UNK
  13. NEURONTIN [Concomitant]
     Indication: DIABETIC NEUROPATHY

REACTIONS (3)
  - ANGER [None]
  - DRUG INEFFECTIVE [None]
  - VOMITING [None]
